FAERS Safety Report 9713603 (Version 2)
Quarter: 2013Q4

REPORT INFORMATION
  Report Type: Report from Study
  Country: BR (occurrence: BR)
  Receive Date: 20131126
  Receipt Date: 20131224
  Transmission Date: 20140711
  Serious: Yes (Life-Threatening, Other)
  Sender: FDA-Public Use
  Company Number: PHHY2013BR134751

PATIENT
  Sex: Female

DRUGS (5)
  1. ACLASTA [Suspect]
     Indication: OSTEOPOROSIS
     Dosage: 5 MG, UNK
     Route: 042
     Dates: start: 20130813
  2. HYPERICUM PERFORATUM [Concomitant]
     Dosage: 1 DF, DAILY
     Route: 048
     Dates: start: 201307
  3. CALCIUM CARBONATE [Concomitant]
     Indication: OSTEOPOROSIS
     Dosage: 1 DF (CALCIUM CARBONATE + VITAMIN B3), DAILY
     Route: 048
     Dates: start: 201307
  4. ISOFLAVON [Concomitant]
     Dosage: 2 DF (PERSEA GRATISSIMA + ISOFLAVONE), DAILY
     Route: 048
     Dates: start: 201307
  5. VITAMIN B3 [Concomitant]
     Indication: OSTEOPOROSIS
     Dosage: 1 DF (CALCIUM CARBONATE + VITAMIN B3), DAILY
     Route: 048
     Dates: start: 201307

REACTIONS (12)
  - Feeling abnormal [Recovered/Resolved]
  - Fibromyalgia [Recovering/Resolving]
  - Pain [Not Recovered/Not Resolved]
  - Tachycardia [Recovered/Resolved]
  - Feeling cold [Recovered/Resolved]
  - Hypersensitivity [Not Recovered/Not Resolved]
  - Pruritus [Recovering/Resolving]
  - Erythema [Recovered/Resolved]
  - Malaise [Recovering/Resolving]
  - Headache [Recovering/Resolving]
  - Anaphylactic shock [Recovered/Resolved]
  - Pyrexia [Recovered/Resolved]
